FAERS Safety Report 5203811-8 (Version None)
Quarter: 2007Q1

REPORT INFORMATION
  Report Type: 
  Country: None (occurrence: None)
  Receive Date: 20070109
  Receipt Date: 20070109
  Transmission Date: 20070707
  Serious: Yes (Hospitalization)
  Sender: FDA-Public Use
  Company Number: None

PATIENT
  Age: 66 Year
  Sex: Male

DRUGS (2)
  1. OXALIPLATIN [Suspect]
     Dosage: 220 MG IV
     Route: 042
     Dates: start: 20061227
  2. DOCETAXEL [Suspect]
     Dosage: 132 MG IV
     Route: 042
     Dates: start: 20061227

REACTIONS (1)
  - DIARRHOEA [None]
